FAERS Safety Report 7954982-1 (Version None)
Quarter: 2011Q4

REPORT INFORMATION
  Report Type: 
  Country: None (occurrence: None)
  Receive Date: 20111202
  Receipt Date: 20111124
  Transmission Date: 20120403
  Serious: Yes (Other)
  Sender: FDA-Public Use
  Company Number: PHHY2011GB103095

PATIENT
  Age: 38 Year
  Sex: Female

DRUGS (7)
  1. CLONAZEPAM [Concomitant]
     Dosage: 1000 UG, BID
     Dates: start: 20091130
  2. KEPPRA [Concomitant]
     Dosage: 250 MG, QD
     Dates: start: 20110727
  3. KEPPRA [Concomitant]
     Dosage: 250 MG, BID
     Dates: start: 20110831
  4. TOPAMAX [Suspect]
     Indication: EPILEPSY
     Dosage: 50 MG, UNK
     Route: 048
     Dates: start: 20070703
  5. FLUOXETINE [Suspect]
     Dosage: 20 MG, QD
     Dates: start: 20101018, end: 20110831
  6. CLONAZEPAM [Concomitant]
     Dosage: 200 UG, QD
     Dates: start: 20110915
  7. FOLIC ACID [Concomitant]
     Dosage: 5 MG, QD
     Dates: start: 20091130

REACTIONS (13)
  - ABDOMINAL PAIN UPPER [None]
  - TOOTH LOSS [None]
  - SOMNOLENCE [None]
  - DEPRESSION [None]
  - PALPITATIONS [None]
  - IRRITABLE BOWEL SYNDROME [None]
  - FEELING ABNORMAL [None]
  - GINGIVAL BLEEDING [None]
  - WEIGHT DECREASED [None]
  - DIARRHOEA [None]
  - PARAESTHESIA [None]
  - MOOD SWINGS [None]
  - EMOTIONAL POVERTY [None]
